FAERS Safety Report 8606478-1 (Version None)
Quarter: 2012Q3

REPORT INFORMATION
  Report Type: 
  Country: None (occurrence: None)
  Receive Date: 20120820
  Receipt Date: 20120816
  Transmission Date: 20120928
  Serious: Yes (Death)
  Sender: FDA-Public Use
  Company Number: RO-BAYER-2012-084117

PATIENT
  Age: 24 Year
  Sex: Female

DRUGS (10)
  1. KOGENATE [Suspect]
     Indication: ACQUIRED HAEMOPHILIA
  2. CYCLOPHOSPHAMIDE [Concomitant]
     Indication: ACQUIRED HAEMOPHILIA
     Dosage: 200 MG, QD
  3. NOVOSEVEN [Concomitant]
     Indication: ACQUIRED HAEMOPHILIA
     Dosage: 90 ?G/KG, UNK
  4. METHYLPREDNISOLONE [Concomitant]
     Indication: ACQUIRED HAEMOPHILIA
     Dosage: 250 MG, QD
  5. NOVOSEVEN [Concomitant]
     Indication: POSTPARTUM HAEMORRHAGE
     Dosage: 90 ?G/KG, Q2HR
  6. WHOLE BLOOD [Concomitant]
     Indication: POSTPARTUM HAEMORRHAGE
  7. PLASMA [Concomitant]
     Indication: POSTPARTUM HAEMORRHAGE
  8. METHYLPREDNISOLONE [Concomitant]
     Indication: POSTPARTUM HAEMORRHAGE
  9. KOGENATE [Suspect]
     Indication: POSTPARTUM HAEMORRHAGE
  10. CYCLOPHOSPHAMIDE [Concomitant]
     Indication: POSTPARTUM HAEMORRHAGE

REACTIONS (1)
  - HAEMORRHAGIC DIATHESIS [None]
